FAERS Safety Report 6805429-X (Version None)
Quarter: 2010Q2

REPORT INFORMATION
  Report Type: 
  Country: None (occurrence: None)
  Receive Date: 20100628
  Receipt Date: 20071212
  Transmission Date: 20101027
  Serious: No
  Sender: FDA-Public Use
  Company Number: US-PFIZER INC-2007086806

PATIENT
  Age: 46 Year
  Sex: Female

DRUGS (5)
  1. GEODON [Suspect]
     Dates: start: 20070901, end: 20070916
  2. LITHIUM [Concomitant]
  3. PERCOCET [Concomitant]
  4. METHOCARBAMOL [Concomitant]
  5. GLIPIZIDE [Concomitant]

REACTIONS (4)
  - DRUG INEFFECTIVE [None]
  - HEADACHE [None]
  - NAUSEA [None]
  - VOMITING [None]
